FAERS Safety Report 9119395 (Version 5)
Quarter: 2013Q2

REPORT INFORMATION
  Report Type: Spontaneous
  Country: JP (occurrence: JP)
  Receive Date: 20130226
  Receipt Date: 20130612
  Transmission Date: 20140414
  Serious: Yes (Death, Hospitalization)
  Sender: FDA-Public Use
  Company Number: JP-AMGEN-JPNSP2013012614

PATIENT
  Age: 65 Year
  Sex: Male
  Weight: 55 kg

DRUGS (6)
  1. VECTIBIX [Suspect]
     Indication: RECTAL CANCER
     Dosage: 330 MG, QMO
     Route: 041
     Dates: start: 20121128, end: 20121128
  2. VECTIBIX [Suspect]
     Dosage: 330 MG, QMO
     Route: 041
     Dates: start: 20121226, end: 20121226
  3. VECTIBIX [Suspect]
     Dosage: 330 MG, QMO
     Route: 041
     Dates: start: 20130123, end: 20130123
  4. IRINOTECAN HYDROCHLORIDE [Suspect]
     Indication: RECTAL CANCER
     Dosage: 120 MG, Q2WK
     Route: 041
     Dates: start: 20121128, end: 20130124
  5. 5-FU [Suspect]
     Indication: RECTAL CANCER
     Dosage: 1250 MG, QMO
     Route: 041
     Dates: start: 20121128, end: 20130125
  6. CALCIUM LEVOFOLINATE [Concomitant]
     Indication: RECTAL CANCER
     Dosage: 125 MG, QMO
     Route: 041
     Dates: start: 20121128, end: 20130125

REACTIONS (2)
  - Interstitial lung disease [Fatal]
  - Pneumothorax [Unknown]
